FAERS Safety Report 9096253 (Version 1)
Quarter: 2013Q1

REPORT INFORMATION
  Report Type: Spontaneous
  Country: US (occurrence: US)
  Receive Date: 20130207
  Receipt Date: 20130207
  Transmission Date: 20140127
  Serious: Yes (Other)
  Sender: FDA-Public Use
  Company Number: US-SANOFI-AVENTIS-2013SA010055

PATIENT
  Age: 47 Year
  Sex: Male

DRUGS (4)
  1. PLAVIX [Suspect]
     Indication: CEREBROVASCULAR ACCIDENT
  2. COPAXONE [Suspect]
     Indication: MULTIPLE SCLEROSIS
     Route: 058
     Dates: start: 20120427
  3. LISINOPRIL [Concomitant]
     Indication: CEREBROVASCULAR ACCIDENT
  4. PRILOSEC [Concomitant]

REACTIONS (5)
  - Fall [Unknown]
  - Demyelination [Unknown]
  - Multiple sclerosis relapse [Recovered/Resolved]
  - Neurological symptom [Recovered/Resolved]
  - Ulcer haemorrhage [Unknown]
